FAERS Safety Report 18177394 (Version 1)
Quarter: 2020Q3

REPORT INFORMATION
  Report Type: Spontaneous
  Country: US (occurrence: US)
  Receive Date: 20200820
  Receipt Date: 20200820
  Transmission Date: 20201103
  Serious: No
  Sender: FDA-Public Use
  Company Number: US-ASTRAZENECA-2020SF05576

PATIENT
  Age: 68 Year
  Sex: Male

DRUGS (1)
  1. PRILOSEC OTC [Suspect]
     Active Substance: OMEPRAZOLE MAGNESIUM
     Indication: GASTROOESOPHAGEAL REFLUX DISEASE
     Dosage: 1.0DF UNKNOWN
     Route: 048

REACTIONS (3)
  - Gastrooesophageal reflux disease [Unknown]
  - Drug ineffective for unapproved indication [Unknown]
  - Throat irritation [Unknown]
